FAERS Safety Report 20586742 (Version 3)
Quarter: 2022Q4

REPORT INFORMATION
  Report Type: Spontaneous
  Country: US (occurrence: US)
  Receive Date: 20220313
  Receipt Date: 20221214
  Transmission Date: 20230113
  Serious: Yes (Other)
  Sender: FDA-Public Use
  Company Number: US-GILEAD-2022-0572894

PATIENT
  Age: 51 Year
  Sex: Male
  Weight: 67.12 kg

DRUGS (14)
  1. TRUVADA [Suspect]
     Active Substance: EMTRICITABINE\TENOFOVIR DISOPROXIL FUMARATE
     Indication: Prophylaxis against HIV infection
     Dosage: UNK
     Route: 048
     Dates: start: 2010, end: 202103
  2. DESCOVY [Concomitant]
     Active Substance: EMTRICITABINE\TENOFOVIR ALAFENAMIDE FUMARATE
  3. FINASTERIDE [Concomitant]
     Active Substance: FINASTERIDE
  4. CIALIS [Concomitant]
     Active Substance: TADALAFIL
  5. AMLODIPINE [Concomitant]
     Active Substance: AMLODIPINE BESYLATE
  6. MEDROL [Concomitant]
     Active Substance: METHYLPREDNISOLONE
  7. TRIAMCINOLONE [Concomitant]
     Active Substance: TRIAMCINOLONE
  8. PREDNISONE [Concomitant]
     Active Substance: PREDNISONE
  9. CEFUROXIME [Concomitant]
     Active Substance: CEFUROXIME
  10. IVERMECTIN [Concomitant]
     Active Substance: IVERMECTIN
  11. AMOXICILLIN [Concomitant]
     Active Substance: AMOXICILLIN
  12. LANSOPRAZOLE [Concomitant]
     Active Substance: LANSOPRAZOLE
  13. LISINOPRIL [Concomitant]
     Active Substance: LISINOPRIL
  14. CANNABIS SATIVA SUBSP. INDICA TOP [Concomitant]
     Active Substance: CANNABIS SATIVA SUBSP. INDICA TOP

REACTIONS (15)
  - Osteoporosis [Unknown]
  - Bone density decreased [Unknown]
  - Osteopenia [Unknown]
  - Pain [Not Recovered/Not Resolved]
  - Emotional distress [Not Recovered/Not Resolved]
  - Anxiety [Not Recovered/Not Resolved]
  - Anhedonia [Not Recovered/Not Resolved]
  - Skeletal injury [Unknown]
  - Arthralgia [Not Recovered/Not Resolved]
  - Dental caries [Not Recovered/Not Resolved]
  - Back pain [Not Recovered/Not Resolved]
  - Joint range of motion decreased [Not Recovered/Not Resolved]
  - Foot fracture [Recovered/Resolved]
  - Pain in extremity [Unknown]
  - Musculoskeletal disorder [Not Recovered/Not Resolved]

NARRATIVE: CASE EVENT DATE: 20210101
